FAERS Safety Report 7407693-5 (Version None)
Quarter: 2011Q2

REPORT INFORMATION
  Report Type: 
  Country: None (occurrence: None)
  Receive Date: 20110401
  Receipt Date: 20110323
  Transmission Date: 20111010
  Serious: Yes (Other)
  Sender: FDA-Public Use
  Company Number: 2011SP013435

PATIENT
  Age: 40 Year
  Sex: Female

DRUGS (1)
  1. NOXAFIL [Suspect]
     Indication: PRODUCT USED FOR UNKNOWN INDICATION
     Dosage: 5 ML;QID

REACTIONS (1)
  - HYPERCALCAEMIA [None]
